FAERS Safety Report 15010747 (Version 1)
Quarter: 2018Q2

REPORT INFORMATION
  Report Type: Spontaneous
  Country: US (occurrence: US)
  Receive Date: 20180529
  Receipt Date: 20180529
  Transmission Date: 20180711
  Serious: Yes (Hospitalization)
  Sender: FDA-Public Use
  Company Number: None

PATIENT
  Age: 63 Year
  Sex: Female

DRUGS (13)
  1. HUMIRA [Suspect]
     Active Substance: ADALIMUMAB
     Indication: RHEUMATOID ARTHRITIS
     Route: 058
     Dates: start: 20100128
  2. NYSTATIN. [Concomitant]
     Active Substance: NYSTATIN
  3. FISH OIL [Concomitant]
     Active Substance: FISH OIL
  4. BENZTROPINE. [Concomitant]
     Active Substance: BENZTROPINE
  5. TRAZODONE [Concomitant]
     Active Substance: TRAZODONE HYDROCHLORIDE
  6. ALBUTEROL. [Concomitant]
     Active Substance: ALBUTEROL
  7. COLACE [Concomitant]
     Active Substance: DOCUSATE SODIUM
  8. ALEVE [Concomitant]
     Active Substance: NAPROXEN SODIUM
  9. LIPITOR [Concomitant]
     Active Substance: ATORVASTATIN CALCIUM
  10. PRAVASTATIN. [Concomitant]
     Active Substance: PRAVASTATIN
  11. SYNTHROID [Concomitant]
     Active Substance: LEVOTHYROXINE SODIUM
  12. DULERA [Concomitant]
     Active Substance: FORMOTEROL FUMARATE DIHYDRATE\MOMETASONE FUROATE
  13. PERPHENAZINE. [Concomitant]
     Active Substance: PERPHENAZINE

REACTIONS (2)
  - Dyspnoea [None]
  - Influenza [None]

NARRATIVE: CASE EVENT DATE: 20180525
